FAERS Safety Report 24993208 (Version 1)
Quarter: 2025Q1

REPORT INFORMATION
  Report Type: Spontaneous
  Country: GB (occurrence: GB)
  Receive Date: 20250221
  Receipt Date: 20250221
  Transmission Date: 20250409
  Serious: Yes (Other)
  Sender: ALEXION PHARMACEUTICALS
  Company Number: GB-MHRA-EMIS-5521-b21f3571-8d57-435a-bc4f-4b9771e6c555

PATIENT
  Age: 44 Year
  Weight: 73 kg

DRUGS (5)
  1. BYDUREON [Suspect]
     Active Substance: EXENATIDE
  2. VICTOZA [Concomitant]
     Active Substance: LIRAGLUTIDE
  3. NITROFURANTOIN [Concomitant]
     Active Substance: NITROFURANTOIN
     Route: 065
  4. Contour [Concomitant]
     Route: 065
  5. Microlet [Concomitant]
     Route: 065

REACTIONS (3)
  - Contusion [Recovering/Resolving]
  - Injection site erythema [Unknown]
  - Pain [Recovered/Resolved]
